FAERS Safety Report 8412606-3 (Version None)
Quarter: 2012Q2

REPORT INFORMATION
  Report Type: 
  Country: None (occurrence: None)
  Receive Date: 20120605
  Receipt Date: 20120530
  Transmission Date: 20120825
  Serious: Yes (Other)
  Sender: FDA-Public Use
  Company Number: AU-ASTRAZENECA-2012SE25688

PATIENT
  Age: 70 Year
  Sex: Female
  Weight: 60 kg

DRUGS (6)
  1. SYMBICORT [Suspect]
     Indication: ASTHMA
     Dosage: 200/6, UNKNOWN FREQUENCY
     Route: 055
  2. SYMBICORT [Suspect]
     Dosage: 2/52, DAILY
     Route: 055
  3. ALPHAPRIL [Concomitant]
     Indication: BLOOD PRESSURE
  4. SYMBICORT [Suspect]
     Dosage: 2/52, TWO TIMES A DAY
     Route: 055
  5. XALATAN [Concomitant]
     Indication: GLAUCOMA
  6. ACETEC [Concomitant]
     Indication: HYPERTENSION
     Route: 048

REACTIONS (10)
  - NAUSEA [None]
  - HEPATIC PAIN [None]
  - CATARACT [None]
  - GLAUCOMA [None]
  - MALAISE [None]
  - TREMOR [None]
  - THYROID PAIN [None]
  - MOOD ALTERED [None]
  - INTENTIONAL DRUG MISUSE [None]
  - BLOOD PRESSURE INCREASED [None]
